FAERS Safety Report 7671284-1 (Version None)
Quarter: 2011Q3

REPORT INFORMATION
  Report Type: 
  Country: None (occurrence: None)
  Receive Date: 20110809
  Receipt Date: 20110802
  Transmission Date: 20111222
  Serious: Yes (Other)
  Sender: FDA-Public Use
  Company Number: US-BAYER-2011-002744

PATIENT
  Age: 71 Year
  Sex: Female

DRUGS (3)
  1. ANTI-DIABETICS [Concomitant]
  2. NEXAVAR [Suspect]
     Indication: RENAL CELL CARCINOMA
     Dosage: 400 MG, BID
     Route: 048
     Dates: start: 20101224
  3. NEXAVAR [Suspect]
     Dosage: 200 MG, BID
     Route: 048
     Dates: start: 20101224, end: 20110215

REACTIONS (15)
  - BLOOD GLUCOSE DECREASED [None]
  - DIARRHOEA [None]
  - ORAL PAIN [None]
  - DECREASED APPETITE [None]
  - DRY SKIN [None]
  - ABASIA [None]
  - ARTHRALGIA [None]
  - ERYTHEMA [None]
  - EATING DISORDER [None]
  - VOMITING [None]
  - HYPOPHAGIA [None]
  - FATIGUE [None]
  - RASH MACULAR [None]
  - NAUSEA [None]
  - DYSGEUSIA [None]
